FAERS Safety Report 13195852 (Version 1)
Quarter: 2017Q1

REPORT INFORMATION
  Report Type: Spontaneous
  Country: HR (occurrence: HR)
  Receive Date: 20170208
  Receipt Date: 20170208
  Transmission Date: 20170428
  Serious: Yes (Other)
  Sender: FDA-Public Use
  Company Number: HR-009507513-1702HRV002000

PATIENT
  Sex: Female

DRUGS (1)
  1. PUREGON [Suspect]
     Active Substance: FOLLITROPIN
     Dosage: 50 IU, UNK

REACTIONS (1)
  - Seizure [Recovered/Resolved]
